FAERS Safety Report 16402944 (Version 2)
Quarter: 2019Q3

REPORT INFORMATION
  Report Type: Report from Study
  Country: IT (occurrence: IT)
  Receive Date: 20190607
  Receipt Date: 20190701
  Transmission Date: 20191004
  Serious: Yes (Other)
  Sender: FDA-Public Use
  Company Number: IT-CELLTRION INC.-2019IT019429

PATIENT

DRUGS (9)
  1. CHOP [Suspect]
     Active Substance: CYCLOPHOSPHAMIDE\DOXORUBICIN\PREDNISONE\VINCRISTINE
     Indication: DIFFUSE LARGE B-CELL LYMPHOMA
     Dosage: UNK
     Route: 065
  2. TRUXIMA [Suspect]
     Active Substance: RITUXIMAB-ABBS
     Dosage: 750 MG, EVERY 3 WEEKS
     Route: 065
     Dates: start: 20171212, end: 20171212
  3. TRUXIMA [Suspect]
     Active Substance: RITUXIMAB-ABBS
     Dosage: 750 MG, EVERY 3 WEEKS
     Route: 065
     Dates: start: 20180104, end: 20180104
  4. TRUXIMA [Suspect]
     Active Substance: RITUXIMAB-ABBS
     Dosage: 750 MG, EVERY 3 WEEKS
     Route: 065
     Dates: start: 20180216, end: 20180216
  5. TRUXIMA [Suspect]
     Active Substance: RITUXIMAB-ABBS
     Dosage: 750 MG, EVERY 3 WEEKS, (MAINTENANCE, ONLY TRUXIMA)
     Route: 065
     Dates: start: 20180329, end: 20180329
  6. TRUXIMA [Suspect]
     Active Substance: RITUXIMAB-ABBS
     Dosage: 750 MG, EVERY 3 WEEKS, (MAINTENANCE, ONLY TRUXIMA)
     Route: 065
     Dates: start: 20180420, end: 20180420
  7. TRUXIMA [Suspect]
     Active Substance: RITUXIMAB-ABBS
     Dosage: 750 MG, EVERY 3 WEEKS
     Route: 065
     Dates: start: 20180309, end: 20180309
  8. TRUXIMA [Suspect]
     Active Substance: RITUXIMAB-ABBS
     Indication: DIFFUSE LARGE B-CELL LYMPHOMA
     Dosage: 750 MG, EVERY 3 WEEKS
     Route: 065
     Dates: start: 20171129, end: 20171129
  9. TRUXIMA [Suspect]
     Active Substance: RITUXIMAB-ABBS
     Dosage: 750 MG, EVERY 3 WEEKS
     Route: 065
     Dates: start: 20180125, end: 20180125

REACTIONS (2)
  - Urticaria [Recovered/Resolved]
  - Laryngeal oedema [Recovered/Resolved]

NARRATIVE: CASE EVENT DATE: 20171129
